FAERS Safety Report 7134821-1 (Version None)
Quarter: 2010Q4

REPORT INFORMATION
  Report Type: 
  Country: None (occurrence: None)
  Receive Date: 20101203
  Receipt Date: 20101126
  Transmission Date: 20110411
  Serious: Yes (Other)
  Sender: FDA-Public Use
  Company Number: FR-JNJFOC-20101200751

PATIENT
  Age: 19 Year
  Sex: Male

DRUGS (2)
  1. RISPERDAL CONSTA [Suspect]
     Indication: ABNORMAL BEHAVIOUR
     Dosage: MAR-2010(OR APR-2010)
     Route: 030
  2. ABILIFY [Concomitant]
     Route: 065

REACTIONS (1)
  - ELECTROENCEPHALOGRAM ABNORMAL [None]
